FAERS Safety Report 8999745 (Version 1)
Quarter: 2013Q1

REPORT INFORMATION
  Report Type: Spontaneous
  Country: US (occurrence: US)
  Receive Date: 20130102
  Receipt Date: 20130102
  Transmission Date: 20140127
  Serious: Yes (Hospitalization)
  Sender: FDA-Public Use
  Company Number: US-PFIZER INC-2012332138

PATIENT
  Age: 53 Year
  Sex: Female
  Weight: 72.56 kg

DRUGS (4)
  1. CELEBREX [Suspect]
     Indication: OSTEOARTHRITIS
     Dosage: 200 MG, DAILY
     Route: 048
  2. OMEPRAZOLE [Concomitant]
     Indication: GASTRITIS
     Dosage: 200 MG, DAILY
  3. ZANTAC [Concomitant]
     Indication: GASTRITIS
     Dosage: 300 MG, DAILY
  4. DEXILANT [Concomitant]
     Indication: PROPHYLAXIS
     Dosage: 60 MG, DAILY

REACTIONS (1)
  - Lung neoplasm malignant [Recovering/Resolving]
